FAERS Safety Report 17317210 (Version 1)
Quarter: 2020Q1

REPORT INFORMATION
  Report Type: Spontaneous
  Country: US (occurrence: US)
  Receive Date: 20200124
  Receipt Date: 20200124
  Transmission Date: 20200409
  Serious: No
  Sender: FDA-Public Use
  Company Number: US-BEH-2020111823

PATIENT
  Age: 67 Year
  Sex: Female
  Weight: 143.31 kg

DRUGS (2)
  1. HAEGARDA [Suspect]
     Active Substance: HUMAN C1-ESTERASE INHIBITOR
     Indication: PROPHYLAXIS
     Dosage: 9000 INTERNATIONAL UNIT, BIW (EVERY THREE TO FOUR DAYS)
     Route: 058
     Dates: start: 20190726, end: 20190807
  2. HAEGARDA [Suspect]
     Active Substance: HUMAN C1-ESTERASE INHIBITOR
     Indication: HEREDITARY ANGIOEDEMA

REACTIONS (3)
  - Pruritus [Recovered/Resolved]
  - Joint stiffness [Unknown]
  - Arthralgia [Recovered/Resolved]
